FAERS Safety Report 15467302 (Version 2)
Quarter: 2018Q4

REPORT INFORMATION
  Report Type: Report from Study
  Country: US (occurrence: US)
  Receive Date: 20181005
  Receipt Date: 20181022
  Transmission Date: 20190204
  Serious: No
  Sender: FDA-Public Use
  Company Number: US-TESAROUBC-2018-TSO0821-US

PATIENT
  Age: 49 Year
  Sex: Female

DRUGS (2)
  1. ZEJULA [Suspect]
     Active Substance: NIRAPARIB
     Indication: UTERINE CANCER
     Dosage: 200 MG, QD
     Route: 048
     Dates: start: 20180911
  2. ZEJULA [Suspect]
     Active Substance: NIRAPARIB
     Indication: ENDOMETRIAL CANCER
     Dosage: 200 MG
     Route: 048
     Dates: start: 20180911, end: 20180926

REACTIONS (4)
  - Dizziness [Unknown]
  - Product dose omission [Unknown]
  - Lymphocyte count decreased [Unknown]
  - Unevaluable event [Unknown]

NARRATIVE: CASE EVENT DATE: 20180925
